FAERS Safety Report 11992166 (Version 1)
Quarter: 2016Q1

REPORT INFORMATION
  Report Type: Spontaneous
  Country: US (occurrence: US)
  Receive Date: 20160203
  Receipt Date: 20160203
  Transmission Date: 20160526
  Serious: No
  Sender: FDA-Public Use
  Company Number: US-JNJFOC-20151215368

PATIENT
  Age: 55 Year
  Sex: Female
  Weight: 69.4 kg

DRUGS (2)
  1. TYLENOL EXTRA STRENGTH [Suspect]
     Active Substance: ACETAMINOPHEN
     Indication: ANALGESIC THERAPY
     Route: 048
  2. TYLENOL EXTRA STRENGTH [Suspect]
     Active Substance: ACETAMINOPHEN
     Indication: ANALGESIC THERAPY
     Dosage: SINCE JULY??SHE SOMETIMES WILL TAKE 2 A DAY AS NEEDED
     Route: 048

REACTIONS (3)
  - Somnolence [Recovered/Resolved]
  - Product quality issue [Unknown]
  - Incorrect dose administered [Recovered/Resolved]
